FAERS Safety Report 9943546 (Version 1)
Quarter: 2014Q1

REPORT INFORMATION
  Report Type: Spontaneous
  Country: US (occurrence: US)
  Receive Date: 20140303
  Receipt Date: 20140303
  Transmission Date: 20141002
  Serious: Yes (Other)
  Sender: FDA-Public Use
  Company Number: US-ROXANE LABORATORIES, INC.-2014-RO-00333RO

PATIENT
  Age: 56 Year
  Sex: Female

DRUGS (4)
  1. FLUTICASONE [Suspect]
     Indication: SINUSITIS
     Dosage: 100 MCG
     Route: 045
     Dates: start: 201401, end: 201401
  2. MAXAIR [Concomitant]
     Indication: ASTHMA
     Route: 055
  3. LEVALBUTEROL [Concomitant]
     Indication: ASTHMA
     Route: 055
  4. TERBUTALINE [Concomitant]
     Indication: ASTHMA
     Route: 055

REACTIONS (7)
  - Asthma [Recovered/Resolved]
  - Dizziness [Recovered/Resolved]
  - Nasal congestion [Recovered/Resolved]
  - Nasal discomfort [Recovered/Resolved]
  - Sinus disorder [Recovered/Resolved]
  - Thirst [Recovered/Resolved]
  - Product quality issue [Unknown]
